FAERS Safety Report 24738625 (Version 1)
Quarter: 2024Q4

REPORT INFORMATION
  Report Type: Spontaneous
  Country: US (occurrence: US)
  Receive Date: 20241216
  Receipt Date: 20241216
  Transmission Date: 20250115
  Serious: No
  Sender: ALVOGEN
  Company Number: US-ALVOGEN-2023092773

PATIENT

DRUGS (1)
  1. FENTANYL [Suspect]
     Active Substance: FENTANYL
     Indication: Pain
     Dosage: FENTANYL 100MG PATCHES?EXP DATE: 30-NOV-2022
     Route: 062

REACTIONS (5)
  - Device malfunction [Unknown]
  - Device adhesion issue [Unknown]
  - Device dispensing error [Unknown]
  - Expired device used [Unknown]
  - Product use issue [Unknown]
